FAERS Safety Report 20886800 (Version 1)
Quarter: 2022Q2

REPORT INFORMATION
  Report Type: Spontaneous
  Country: CN (occurrence: CN)
  Receive Date: 20220528
  Receipt Date: 20220528
  Transmission Date: 20220721
  Serious: Yes (Other)
  Sender: FDA-Public Use
  Company Number: CN-SA-2022SA187835

PATIENT
  Age: 73 Year
  Sex: Male

DRUGS (6)
  1. ISONIAZID [Suspect]
     Active Substance: ISONIAZID
     Indication: Tuberculosis
     Dosage: 300 MG, QD
  2. ISONIAZID [Suspect]
     Active Substance: ISONIAZID
     Dosage: 300 MG, QD
  3. RIFAMPIN [Suspect]
     Active Substance: RIFAMPIN
     Indication: Tuberculosis
     Dosage: 450 MG, QD
  4. RIFAMPIN [Suspect]
     Active Substance: RIFAMPIN
     Dosage: 450 MG, QD
  5. PYRAZINAMIDE [Suspect]
     Active Substance: PYRAZINAMIDE
     Indication: Tuberculosis
     Dosage: 1500 MG, QD
  6. ETHAMBUTOL [Suspect]
     Active Substance: ETHAMBUTOL HYDROCHLORIDE
     Indication: Tuberculosis
     Dosage: 750 MG, QD

REACTIONS (2)
  - Anal ulcer [Recovered/Resolved]
  - Rebound effect [Recovered/Resolved]
